FAERS Safety Report 16841983 (Version 2)
Quarter: 2019Q3

REPORT INFORMATION
  Report Type: Report from Study
  Country: US (occurrence: US)
  Receive Date: 20190923
  Receipt Date: 20190930
  Transmission Date: 20191005
  Serious: No
  Sender: FDA-Public Use
  Company Number: PHEH2019US039021

PATIENT
  Age: 48 Year
  Sex: Female

DRUGS (1)
  1. MAYZENT [Suspect]
     Active Substance: SIPONIMOD
     Indication: MULTIPLE SCLEROSIS
     Dosage: 2 MG, QD
     Route: 048
     Dates: start: 20190910

REACTIONS (14)
  - Chest discomfort [Unknown]
  - Heart rate decreased [Unknown]
  - Cough [Unknown]
  - Dry mouth [Unknown]
  - Nasopharyngitis [Not Recovered/Not Resolved]
  - Blood pressure decreased [Recovering/Resolving]
  - Heart rate increased [Unknown]
  - Urine output decreased [Unknown]
  - Dizziness [Unknown]
  - Oropharyngeal pain [Unknown]
  - Confusional state [Recovering/Resolving]
  - Chromaturia [Unknown]
  - Vision blurred [Recovering/Resolving]
  - Headache [Unknown]

NARRATIVE: CASE EVENT DATE: 201909
